FAERS Safety Report 19997581 (Version 1)
Quarter: 2021Q4

REPORT INFORMATION
  Report Type: Spontaneous
  Country: US (occurrence: US)
  Receive Date: 20211026
  Receipt Date: 20211026
  Transmission Date: 20220303
  Serious: Yes (Hospitalization)
  Sender: FDA-Public Use
  Company Number: US-MYLANLABS-2021M1075650

PATIENT
  Age: 60 Year
  Sex: Female

DRUGS (5)
  1. LEVOFLOXACIN [Suspect]
     Active Substance: LEVOFLOXACIN
     Indication: Pyoderma gangrenosum
     Dosage: UNK
     Route: 048
  2. LEVOFLOXACIN [Suspect]
     Active Substance: LEVOFLOXACIN
     Indication: Pyoderma gangrenosum
     Dosage: UNK
     Route: 042
  3. METRONIDAZOLE [Suspect]
     Active Substance: METRONIDAZOLE
     Indication: Pyoderma gangrenosum
     Dosage: UNK
     Route: 042
  4. METRONIDAZOLE [Suspect]
     Active Substance: METRONIDAZOLE
     Indication: Pyoderma gangrenosum
     Dosage: UNK
     Route: 048
  5. IXEKIZUMAB [Concomitant]
     Active Substance: IXEKIZUMAB
     Indication: Psoriasis
     Dosage: UNK
     Route: 065

REACTIONS (1)
  - Drug ineffective [Unknown]
